FAERS Safety Report 23596738 (Version 3)
Quarter: 2024Q4

REPORT INFORMATION
  Report Type: Spontaneous
  Country: CA (occurrence: CA)
  Receive Date: 20240305
  Receipt Date: 20241030
  Transmission Date: 20250115
  Serious: Yes (Other)
  Sender: PFIZER
  Company Number: CA-PFIZER INC-202400041763

PATIENT
  Age: 83 Year
  Sex: Female

DRUGS (10)
  1. RUXIENCE [Suspect]
     Active Substance: RITUXIMAB-PVVR
     Indication: Granulomatosis with polyangiitis
     Dosage: 532 MG, WEEKLY (X 4 WEEKS)
     Route: 042
     Dates: start: 20240208
  2. RUXIENCE [Suspect]
     Active Substance: RITUXIMAB-PVVR
     Dosage: 532 MG, WEEKLY (X 4 WEEKS)
     Route: 042
     Dates: start: 20240208
  3. RUXIENCE [Suspect]
     Active Substance: RITUXIMAB-PVVR
     Dosage: 532 MG, WEEKLY (2 WEEKS AFTER LAST TREATMENT)
     Route: 042
     Dates: start: 20240222
  4. RUXIENCE [Suspect]
     Active Substance: RITUXIMAB-PVVR
     Dosage: 532 MG, WEEKLY (532 MG, AFTER 1 WEEK)
     Route: 042
     Dates: start: 20240229
  5. RUXIENCE [Suspect]
     Active Substance: RITUXIMAB-PVVR
     Dosage: 532 MG, WEEKLY (532 MG, AFTER 1 WEEK)
     Route: 042
     Dates: start: 20240229
  6. RUXIENCE [Suspect]
     Active Substance: RITUXIMAB-PVVR
     Dosage: 532 MG, WEEKLY X 4 WEEKS
     Route: 042
     Dates: start: 20240313
  7. RUXIENCE [Suspect]
     Active Substance: RITUXIMAB-PVVR
     Dosage: 532 MG, WEEKLY X 4 WEEKS (1 WEEK AND 6 DAYS
     Route: 042
     Dates: start: 20240313
  8. RUXIENCE [Suspect]
     Active Substance: RITUXIMAB-PVVR
     Dosage: 500 MG, ONE DOSE OF RETREATMENT (ONCE)
     Route: 042
     Dates: start: 20241025
  9. PREDNISONE [Concomitant]
     Active Substance: PREDNISONE
     Dosage: UNK
  10. PREDNISONE [Concomitant]
     Active Substance: PREDNISONE
     Dosage: 40 MG, 1X/DAY

REACTIONS (8)
  - Respiratory distress [Recovered/Resolved]
  - Oxygen saturation decreased [Recovered/Resolved]
  - Dyspnoea [Recovered/Resolved]
  - Contusion [Unknown]
  - Off label use [Unknown]
  - Intentional product use issue [Unknown]
  - Incorrect product administration duration [Unknown]
  - Off label use [Unknown]

NARRATIVE: CASE EVENT DATE: 20240201
